FAERS Safety Report 4683115-2 (Version None)
Quarter: 2005Q2

REPORT INFORMATION
  Report Type: 
  Country: None (occurrence: None)
  Receive Date: 20050602
  Receipt Date: 20050324
  Transmission Date: 20051028
  Serious: No
  Sender: FDA-Public Use
  Company Number: USA050394109

PATIENT
  Age: 82 Year
  Sex: Female
  Weight: 50 kg

DRUGS (6)
  1. CYMBALTA [Suspect]
     Indication: DEPRESSION
     Dosage: 30 MG IN THE MORNING
     Dates: start: 20050324
  2. SYNTHROID [Concomitant]
  3. ASPIRIN [Concomitant]
  4. XANAX (ALPRAZOLAM DUM) [Concomitant]
  5. LOPRESSOR [Concomitant]
  6. ZOCOR (SIMVASTATIN RATIOPHARM) [Concomitant]

REACTIONS (4)
  - DIARRHOEA [None]
  - FATIGUE [None]
  - MALAISE [None]
  - VISION BLURRED [None]
